FAERS Safety Report 24873711 (Version 1)
Quarter: 2025Q1

REPORT INFORMATION
  Report Type: Spontaneous
  Country: US (occurrence: US)
  Receive Date: 20250122
  Receipt Date: 20250122
  Transmission Date: 20250409
  Serious: No
  Sender: BAUSCH AND LOMB
  Company Number: US-BAUSCH-BL-2025-000686

PATIENT
  Age: 84 Year
  Sex: Female
  Weight: 54.026 kg

DRUGS (1)
  1. ENALAPRIL [Suspect]
     Active Substance: ENALAPRIL
     Indication: Hypertension
     Route: 065

REACTIONS (13)
  - Illness [Unknown]
  - Hyperchlorhydria [Unknown]
  - Hypersensitivity [Unknown]
  - Vasodilatation [Unknown]
  - Skin discolouration [Unknown]
  - Erythema [Unknown]
  - Feeling hot [Unknown]
  - Toothache [Unknown]
  - Ear pain [Unknown]
  - Abdominal symptom [Recovered/Resolved]
  - Condition aggravated [Recovered/Resolved]
  - Weight decreased [Unknown]
  - Headache [Unknown]
